FAERS Safety Report 4711969-X (Version None)
Quarter: 2005Q2

REPORT INFORMATION
  Report Type: 
  Country: None (occurrence: None)
  Receive Date: 20050629
  Receipt Date: 20050422
  Transmission Date: 20051028
  Serious: No
  Sender: FDA-Public Use
  Company Number: 05P-163-0298305-00

PATIENT
  Age: 40 Year
  Sex: Female
  Weight: 70.3075 kg

DRUGS (6)
  1. HUMIRA [Suspect]
     Indication: PSORIATIC ARTHROPATHY
     Dosage: 40 MG, 1 IN 2 WK, SUBCUTANEOUS; 40 MG, 1 IN 1 WK, SUBCUTANEOUS;  20 MG, 2 IN 1 WK, SUBCUTANEOUS
     Route: 058
     Dates: start: 20040901, end: 20050201
  2. HUMIRA [Suspect]
     Indication: PSORIATIC ARTHROPATHY
     Dosage: 40 MG, 1 IN 2 WK, SUBCUTANEOUS; 40 MG, 1 IN 1 WK, SUBCUTANEOUS;  20 MG, 2 IN 1 WK, SUBCUTANEOUS
     Route: 058
     Dates: start: 20050201, end: 20050301
  3. HUMIRA [Suspect]
     Indication: PSORIATIC ARTHROPATHY
     Dosage: 40 MG, 1 IN 2 WK, SUBCUTANEOUS; 40 MG, 1 IN 1 WK, SUBCUTANEOUS;  20 MG, 2 IN 1 WK, SUBCUTANEOUS
     Route: 058
     Dates: start: 20050414
  4. MELOXICAM [Concomitant]
  5. METOPROLOL SUCCINATE [Concomitant]
  6. HYDROCODONE BITARTRATE [Concomitant]

REACTIONS (2)
  - MUSCULOSKELETAL STIFFNESS [None]
  - OEDEMA PERIPHERAL [None]
